FAERS Safety Report 5448838-6 (Version None)
Quarter: 2007Q3

REPORT INFORMATION
  Report Type: 
  Country: None (occurrence: None)
  Receive Date: 20070911
  Receipt Date: 20070816
  Transmission Date: 20080115
  Serious: No
  Sender: FDA-Public Use
  Company Number: US-BRISTOL-MYERS SQUIBB COMPANY-13845862

PATIENT
  Age: 40 Year
  Sex: Female
  Weight: 86 kg

DRUGS (8)
  1. EMSAM [Suspect]
     Indication: MAJOR DEPRESSION
     Dosage: THE DOSAGE VALUE OF THE SUSPECT DRUG WAS INCREASED TO 9MG/Q24 FROM 6MG/Q24.
     Route: 062
     Dates: start: 20061006, end: 20070511
  2. LORAZEPAM [Concomitant]
  3. ASPIRIN [Concomitant]
  4. FERROUS SULFATE TAB [Concomitant]
  5. ALTACE [Concomitant]
  6. OMEPRAZOLE [Concomitant]
  7. METOCLOPRAMIDE [Concomitant]
  8. RANITIDINE HCL [Concomitant]

REACTIONS (3)
  - APPLICATION SITE BRUISING [None]
  - GASTROOESOPHAGEAL REFLUX DISEASE [None]
  - OESOPHAGEAL ULCER [None]
